FAERS Safety Report 16806569 (Version 1)
Quarter: 2019Q3

REPORT INFORMATION
  Report Type: Spontaneous
  Country: US (occurrence: US)
  Receive Date: 20190913
  Receipt Date: 20190913
  Transmission Date: 20191005
  Serious: No
  Sender: FDA-Public Use
  Company Number: US-SA-2019SA251890

PATIENT
  Age: 76 Year
  Sex: Female

DRUGS (2)
  1. PRALUENT [Suspect]
     Active Substance: ALIROCUMAB
     Indication: BLOOD CHOLESTEROL INCREASED
     Dosage: UNK, QOW
     Dates: start: 20190712, end: 20190830
  2. PRALUENT [Suspect]
     Active Substance: ALIROCUMAB
     Dosage: UNK

REACTIONS (4)
  - Hypersensitivity [Unknown]
  - Pain [Unknown]
  - Abdominal discomfort [Unknown]
  - Myalgia [Unknown]
